FAERS Safety Report 18753403 (Version 2)
Quarter: 2021Q3

REPORT INFORMATION
  Report Type: Spontaneous
  Country: US (occurrence: US)
  Receive Date: 20210118
  Receipt Date: 20210823
  Transmission Date: 20211014
  Serious: No
  Sender: FDA-Public Use
  Company Number: US-THERATECHNOLOGIES INC.-2021-THE-TES-000007

PATIENT
  Sex: Male

DRUGS (2)
  1. EGRIFTA SV [Suspect]
     Active Substance: TESAMORELIN ACETATE
     Indication: HIV INFECTION
     Dosage: 0.35 ML, QD
     Route: 058
     Dates: start: 20190829
  2. EGRIFTA SV [Suspect]
     Active Substance: TESAMORELIN ACETATE
     Indication: LIPODYSTROPHY ACQUIRED

REACTIONS (1)
  - Diarrhoea [Not Recovered/Not Resolved]
